FAERS Safety Report 19599305 (Version 1)
Quarter: 2021Q3

REPORT INFORMATION
  Report Type: Spontaneous
  Country: NO (occurrence: NO)
  Receive Date: 20210722
  Receipt Date: 20210722
  Transmission Date: 20211014
  Serious: Yes (Life-Threatening)
  Sender: FDA-Public Use
  Company Number: NO-TEVA-2021-NO-1933034

PATIENT
  Age: 31 Year
  Sex: Female
  Weight: 78 kg

DRUGS (1)
  1. PINEX FORTE TAB 500 MG/30 MG [Suspect]
     Active Substance: ACETAMINOPHEN\CODEINE PHOSPHATE
     Indication: POSTOPERATIVE ANALGESIA
     Dosage: FOR ACTIVE INGREDIENT CODEINE THE STRENGTH IS 30 MILLIGRAM .?FOR ACTIVE INGREDIENT PARACETAMOL THE S
     Dates: start: 2012, end: 2012

REACTIONS (4)
  - Muscle spasms [Unknown]
  - Hyperhidrosis [Unknown]
  - Body temperature decreased [Unknown]
  - Dyspnoea [Unknown]

NARRATIVE: CASE EVENT DATE: 2012
